FAERS Safety Report 15231154 (Version 1)
Quarter: 2018Q3

REPORT INFORMATION
  Report Type: Spontaneous
  Country: TW (occurrence: TW)
  Receive Date: 20180802
  Receipt Date: 20180802
  Transmission Date: 20181010
  Serious: Yes (Death)
  Sender: FDA-Public Use
  Company Number: TW-ASTRAZENECA-2018SE97190

PATIENT

DRUGS (1)
  1. BRILINTA [Suspect]
     Active Substance: TICAGRELOR
     Dosage: 180
     Route: 048
     Dates: start: 20180723, end: 20180723

REACTIONS (1)
  - Procedural haemorrhage [Fatal]

NARRATIVE: CASE EVENT DATE: 20180723
